FAERS Safety Report 6923929-9 (Version None)
Quarter: 2010Q3

REPORT INFORMATION
  Report Type: 
  Country: None (occurrence: None)
  Receive Date: 20100813
  Receipt Date: 20100804
  Transmission Date: 20110219
  Serious: Yes (Death, Hospitalization, Other)
  Sender: FDA-Public Use
  Company Number: FR-ELI_LILLY_AND_COMPANY-FR201004002378

PATIENT
  Age: 82 Year
  Sex: Female
  Weight: 50 kg

DRUGS (4)
  1. FORTEO [Suspect]
     Indication: OSTEOPOROSIS
     Dosage: 20 UG, DAILY (1/D)
     Route: 058
     Dates: end: 20100228
  2. FORTEO [Suspect]
     Dosage: 20 UG, DAILY (1/D)
  3. VOLTAREN [Concomitant]
     Indication: RHEUMATOID ARTHRITIS
     Dosage: 75 MG, DAILY (1/D)
     Route: 048
  4. OMEPRAZOLE [Concomitant]
     Indication: RHEUMATOID ARTHRITIS
     Dosage: 20 MG, DAILY (1/D)
     Route: 048

REACTIONS (6)
  - BILE DUCT CANCER [None]
  - DEATH [None]
  - GASTROINTESTINAL CARCINOMA [None]
  - HEPATIC NEOPLASM MALIGNANT [None]
  - HEPATIC VEIN OCCLUSION [None]
  - PANCREATIC CARCINOMA [None]
